FAERS Safety Report 4676536-5 (Version None)
Quarter: 2005Q2

REPORT INFORMATION
  Report Type: 
  Country: None (occurrence: None)
  Receive Date: 20050526
  Receipt Date: 20050513
  Transmission Date: 20051028
  Serious: Yes (Hospitalization, Other)
  Sender: FDA-Public Use
  Company Number: 2005S1003605

PATIENT
  Age: 77 Year
  Sex: Female

DRUGS (6)
  1. LEVOTHYROXINE SODIUM [Suspect]
     Indication: HYPOTHYROIDISM
     Dosage: 112 MCG; QD; PO
     Route: 048
     Dates: start: 20040901, end: 20041201
  2. LISINOPRIL [Concomitant]
  3. AMLODIPINE [Concomitant]
  4. INSULIN HUMAN [Concomitant]
  5. INJECTION, ISOPHANE [Concomitant]
  6. INSULIN HUMAN [Concomitant]

REACTIONS (3)
  - HYPERHIDROSIS [None]
  - LOSS OF CONSCIOUSNESS [None]
  - PHARMACEUTICAL PRODUCT COMPLAINT [None]
